FAERS Safety Report 7156789-4 (Version None)
Quarter: 2010Q4

REPORT INFORMATION
  Report Type: 
  Country: None (occurrence: None)
  Receive Date: 20101214
  Receipt Date: 20101207
  Transmission Date: 20110411
  Serious: Yes (Other)
  Sender: FDA-Public Use
  Company Number: US-PFIZER INC-2010167039

PATIENT
  Sex: Male
  Weight: 143.78 kg

DRUGS (1)
  1. CHANTIX [Suspect]
     Indication: SMOKING CESSATION THERAPY
     Dosage: UNK
     Dates: start: 20100201

REACTIONS (4)
  - ANXIETY [None]
  - HALLUCINATION, AUDITORY [None]
  - INSOMNIA [None]
  - NIGHTMARE [None]
